FAERS Safety Report 8185898-6 (Version None)
Quarter: 2012Q1

REPORT INFORMATION
  Report Type: 
  Country: None (occurrence: None)
  Receive Date: 20120305
  Receipt Date: 20120229
  Transmission Date: 20120608
  Serious: Yes (Life-Threatening, Other)
  Sender: FDA-Public Use
  Company Number: JP-ASTRAZENECA-2012SE14530

PATIENT

DRUGS (1)
  1. OMEPRAZOLE [Suspect]
     Dosage: 22- DAY DOSE OF DRUG
     Route: 048

REACTIONS (3)
  - SUICIDE ATTEMPT [None]
  - COMPLETED SUICIDE [None]
  - OVERDOSE [None]
